FAERS Safety Report 9332519 (Version 1)
Quarter: 2013Q2

REPORT INFORMATION
  Report Type: Spontaneous
  Country: CH (occurrence: CH)
  Receive Date: 20130606
  Receipt Date: 20130606
  Transmission Date: 20140414
  Serious: Yes (Hospitalization)
  Sender: FDA-Public Use
  Company Number: CH-TEVA-402716ISR

PATIENT
  Age: 10 Year
  Sex: Male
  Weight: 30 kg

DRUGS (4)
  1. IRFEN [Suspect]
     Indication: PAIN
     Route: 048
     Dates: start: 20130319, end: 20130418
  2. DAFALGAN [Suspect]
     Indication: PAIN
     Route: 048
     Dates: start: 20130319, end: 20130418
  3. MERONEM [Suspect]
     Indication: SINUSITIS
     Dosage: 3600 MILLIGRAM DAILY;
     Route: 041
     Dates: start: 20130323, end: 20130413
  4. FLUTICASONE [Concomitant]
     Indication: SINUSITIS
     Dosage: NO INFORMATION REGARDING THE DOSAGE REGIMEN, IT WAS CONTINUED AFTER STOP OF MEROPENEM
     Route: 045
     Dates: start: 20130323

REACTIONS (6)
  - Agranulocytosis [Recovered/Resolved]
  - Leukopenia [Not Recovered/Not Resolved]
  - Thrombocytopenia [Recovered/Resolved]
  - Pyrexia [Recovered/Resolved]
  - Headache [Recovered/Resolved]
  - Abdominal pain [Recovered/Resolved]
